FAERS Safety Report 6216155-2 (Version None)
Quarter: 2009Q2

REPORT INFORMATION
  Report Type: 
  Country: None (occurrence: None)
  Receive Date: 20090605
  Receipt Date: 20081015
  Transmission Date: 20091009
  Serious: No
  Sender: FDA-Public Use
  Company Number: US-TYCO HEALTHCARE/MALLINCKRODT-T200801677

PATIENT

DRUGS (2)
  1. ACETAMINOPHEN AND HYDROCODONE BITARTRATE [Suspect]
     Indication: BACK PAIN
     Dosage: 1-2 TAB Q4-6 HR PRN
     Route: 048
     Dates: start: 20080201, end: 20080201
  2. ACETAMINOPHEN AND HYDROCODONE BITARTRATE [Suspect]
     Dosage: UNK
     Dates: start: 20050101

REACTIONS (2)
  - HYPERHIDROSIS [None]
  - VOMITING [None]
